FAERS Safety Report 9515479 (Version 2)
Quarter: 2013Q4

REPORT INFORMATION
  Report Type: Spontaneous
  Country: US (occurrence: US)
  Receive Date: 20130911
  Receipt Date: 20131104
  Transmission Date: 20140711
  Serious: Yes (Other)
  Sender: FDA-Public Use
  Company Number: PHEH2013US018909

PATIENT
  Sex: Male

DRUGS (12)
  1. DIOVAN [Suspect]
     Dosage: 80 MG, QD
     Route: 048
  2. SYNTHROID [Concomitant]
     Dosage: UNK UKN, UNK
  3. METOPROLOL [Concomitant]
     Dosage: UNK UKN, UNK
  4. TRICOR [Concomitant]
     Dosage: UNK UKN, UNK
  5. PLAVIX [Concomitant]
     Dosage: UNK UKN, UNK
  6. LIPITOR [Concomitant]
     Dosage: UNK UKN, UNK
  7. VICTOZA [Concomitant]
     Dosage: UNK UKN, UNK
  8. LANTUS [Concomitant]
     Dosage: UNK UKN, UNK
  9. VITAMIN D [Concomitant]
     Dosage: UNK UKN, UNK
  10. MVI [Concomitant]
     Dosage: UNK UKN, UNK
  11. VITAMIN B 12 [Concomitant]
     Dosage: UNK UKN, UNK
  12. SUPER B COMPLEX                    /01995301/ [Concomitant]
     Dosage: UNK UKN, UNK

REACTIONS (1)
  - Cardiac disorder [Unknown]
